FAERS Safety Report 9047526 (Version 3)
Quarter: 2014Q1

REPORT INFORMATION
  Report Type: Spontaneous
  Country: US (occurrence: US)
  Receive Date: 20130204
  Receipt Date: 20140320
  Transmission Date: 20141002
  Serious: Yes (Hospitalization, Other)
  Sender: FDA-Public Use
  Company Number: US-AMGEN-USASP2013004815

PATIENT
  Age: 58 Year
  Sex: Female

DRUGS (2)
  1. ENBREL [Suspect]
     Indication: RHEUMATOID ARTHRITIS
     Dosage: UNK
     Route: 065
     Dates: start: 20110216
  2. HUMIRA [Concomitant]
     Dosage: UNK
     Dates: start: 2013, end: 201302

REACTIONS (11)
  - Mastectomy [Recovered/Resolved]
  - Cholecystectomy [Recovered/Resolved]
  - Hypotension [Recovered/Resolved]
  - Bile duct obstruction [Recovered/Resolved]
  - Haemorrhage [Recovered/Resolved]
  - Breast mass [Recovered/Resolved]
  - Coccidioidomycosis [Recovered/Resolved]
  - Lung infection [Recovered/Resolved]
  - Incision site pain [Not Recovered/Not Resolved]
  - Incision site erythema [Not Recovered/Not Resolved]
  - Drug ineffective [Unknown]
